FAERS Safety Report 7898867-8 (Version None)
Quarter: 2011Q4

REPORT INFORMATION
  Report Type: 
  Country: None (occurrence: None)
  Receive Date: 20111107
  Receipt Date: 20111104
  Transmission Date: 20120403
  Serious: Yes (Other)
  Sender: FDA-Public Use
  Company Number: US-ABBOTT-11P-163-0869276-00

PATIENT
  Age: 7 Year
  Sex: Female

DRUGS (1)
  1. OMNICEF [Suspect]
     Indication: PRODUCT USED FOR UNKNOWN INDICATION

REACTIONS (5)
  - ADENOTONSILLECTOMY [None]
  - RASH [None]
  - MALAISE [None]
  - OPEN WOUND [None]
  - HYPERSENSITIVITY [None]
